FAERS Safety Report 6191757-0 (Version None)
Quarter: 2009Q2

REPORT INFORMATION
  Report Type: 
  Country: None (occurrence: None)
  Receive Date: 20090515
  Receipt Date: 20090515
  Transmission Date: 20091009
  Serious: Yes (Hospitalization, Other)
  Sender: FDA-Public Use
  Company Number: GB-PFIZER INC-2009193013

PATIENT
  Age: 70 Year

DRUGS (1)
  1. ARTHROTEC [Suspect]
     Indication: OSTEOARTHRITIS

REACTIONS (2)
  - ARTHRITIS [None]
  - NEPHROPATHY TOXIC [None]
